FAERS Safety Report 11154792 (Version 1)
Quarter: 2015Q2

REPORT INFORMATION
  Report Type: Spontaneous
  Country: JP (occurrence: JP)
  Receive Date: 20150602
  Receipt Date: 20150602
  Transmission Date: 20150821
  Serious: Yes (Death, Other)
  Sender: FDA-Public Use
  Company Number: JP-ROCHE-1584127

PATIENT
  Age: 65 Year
  Sex: Male
  Weight: 56 kg

DRUGS (3)
  1. XELODA [Suspect]
     Active Substance: CAPECITABINE
     Indication: COLON CANCER METASTATIC
     Dosage: IT IS ONE ADMINISTERING WEEKLY HOLIDAY MEDICINE FOR TWO WEEKS.
     Route: 048
     Dates: start: 20141217, end: 20150402
  2. AVASTIN [Suspect]
     Active Substance: BEVACIZUMAB
     Indication: COLON CANCER METASTATIC
     Route: 041
     Dates: start: 20150129, end: 20150402
  3. ELPLAT [Suspect]
     Active Substance: OXALIPLATIN
     Indication: COLON CANCER METASTATIC
     Route: 041
     Dates: start: 20141218, end: 20150312

REACTIONS (8)
  - Acute hepatic failure [Fatal]
  - Colon cancer [Fatal]
  - Hypoaesthesia [Unknown]
  - Decreased appetite [Unknown]
  - Temperature intolerance [Unknown]
  - Disseminated intravascular coagulation [Unknown]
  - Hepatic cancer metastatic [Fatal]
  - Hepatic encephalopathy [Unknown]

NARRATIVE: CASE EVENT DATE: 20150129
